FAERS Safety Report 19122726 (Version 1)
Quarter: 2021Q2

REPORT INFORMATION
  Report Type: Spontaneous
  Country: PL (occurrence: PL)
  Receive Date: 20210412
  Receipt Date: 20210412
  Transmission Date: 20210717
  Serious: Yes (Hospitalization, Other)
  Sender: FDA-Public Use
  Company Number: PL-ANIPHARMA-2021-PL-000026

PATIENT
  Age: 57 Year
  Sex: Male
  Weight: 86 kg

DRUGS (9)
  1. IVABRADINE [Suspect]
     Active Substance: IVABRADINE
     Dosage: 2 DF DAILY
     Route: 065
  2. CANDESARTAN CILEXETIL. [Suspect]
     Active Substance: CANDESARTAN CILEXETIL
     Indication: PRODUCT USED FOR UNKNOWN INDICATION
     Dosage: 1 DF UNK
     Route: 048
  3. PANTOPRAZOL [Suspect]
     Active Substance: PANTOPRAZOLE SODIUM
     Dosage: 1 DF UNK
     Route: 065
  4. BISOPROLOL [Suspect]
     Active Substance: BISOPROLOL
     Dosage: 1 DF UNK
     Route: 065
  5. AMIODARONE [Suspect]
     Active Substance: AMIODARONE
     Dosage: 1 DF UNK
     Route: 065
  6. EPLERENONE. [Suspect]
     Active Substance: EPLERENONE
     Dosage: 1 DF UNK
     Route: 065
  7. ALLOPURINOL. [Suspect]
     Active Substance: ALLOPURINOL
     Dosage: 1 DF UNK
     Route: 065
  8. SACUBITRIL+VALSARTAN [Suspect]
     Active Substance: SACUBITRIL\VALSARTAN
     Dosage: 2 DF DAILY
     Route: 065
  9. RIVAROXABAN [Suspect]
     Active Substance: RIVAROXABAN
     Dosage: 1 DF UNK
     Route: 065

REACTIONS (12)
  - Dyspnoea exertional [Unknown]
  - Pulmonary oedema [Unknown]
  - Dyspnoea at rest [Unknown]
  - Asthenia [None]
  - Mitral valve incompetence [Unknown]
  - Ventricular arrhythmia [Unknown]
  - N-terminal prohormone brain natriuretic peptide increased [Recovering/Resolving]
  - Tricuspid valve incompetence [Unknown]
  - Ventricular dysfunction [None]
  - Conduction disorder [None]
  - Supraventricular extrasystoles [None]
  - Ventricular enlargement [None]
